FAERS Safety Report 5532339-0 (Version None)
Quarter: 2007Q4

REPORT INFORMATION
  Report Type: 
  Country: None (occurrence: None)
  Receive Date: 20071203
  Receipt Date: 20071120
  Transmission Date: 20080405
  Serious: Yes (Other)
  Sender: FDA-Public Use
  Company Number: US-AMGEN-STX253409

PATIENT
  Sex: Female

DRUGS (2)
  1. ENBREL [Suspect]
     Indication: PSORIASIS
     Route: 058
     Dates: start: 20070904
  2. CARDIZEM [Suspect]
     Route: 065

REACTIONS (3)
  - ATRIAL FIBRILLATION [None]
  - CONTUSION [None]
  - COUGH [None]
